FAERS Safety Report 9392865 (Version 1)
Quarter: 2013Q3

REPORT INFORMATION
  Report Type: Spontaneous
  Country: US (occurrence: None)
  Receive Date: 20130708
  Receipt Date: 20130708
  Transmission Date: 20140515
  Serious: Yes (Other)
  Sender: FDA-Public Use
  Company Number: None

PATIENT
  Age: 70 Year
  Sex: Female
  Weight: 90.72 kg

DRUGS (1)
  1. GLIPIZIDE ER [Suspect]
     Indication: DIABETES MELLITUS
     Dates: start: 20130617, end: 20130619

REACTIONS (2)
  - Hypoaesthesia [None]
  - Fatigue [None]
